FAERS Safety Report 6156343-7 (Version None)
Quarter: 2009Q2

REPORT INFORMATION
  Report Type: 
  Country: None (occurrence: None)
  Receive Date: 20090415
  Receipt Date: 20090409
  Transmission Date: 20091009
  Serious: Yes (Other)
  Sender: FDA-Public Use
  Company Number: AU-GILEAD-2009-0020866

PATIENT
  Sex: Male

DRUGS (1)
  1. HEPSERA [Suspect]
     Indication: HEPATITIS B
     Dates: end: 20090323

REACTIONS (4)
  - GLYCOSURIA [None]
  - MYOPATHY [None]
  - OSTEOMALACIA [None]
  - PROTEINURIA [None]
